FAERS Safety Report 25352684 (Version 1)
Quarter: 2025Q2

REPORT INFORMATION
  Report Type: Spontaneous
  Country: US (occurrence: None)
  Receive Date: 20250522
  Receipt Date: 20250522
  Transmission Date: 20250716
  Serious: Yes (Disabling, Other)
  Sender: FDA-CTU
  Company Number: None

PATIENT
  Age: 44 Year
  Sex: Female
  Weight: 66.6 kg

DRUGS (9)
  1. ZYRTEC [Suspect]
     Active Substance: CETIRIZINE HYDROCHLORIDE
     Indication: Seasonal allergy
     Dosage: OTHER QUANTITY : 1 TABLET(S);?FREQUENCY : DAILY;?
     Route: 048
  2. ZYRTEC [Suspect]
     Active Substance: CETIRIZINE HYDROCHLORIDE
     Indication: Sinusitis
  3. AJOVY [Concomitant]
     Active Substance: FREMANEZUMAB-VFRM
  4. CANDESARTAN [Concomitant]
     Active Substance: CANDESARTAN
  5. SEASONALE BIRTH CONTROL [Concomitant]
  6. ZYRTEC [Concomitant]
     Active Substance: CETIRIZINE HYDROCHLORIDE
  7. MAGNESIUM [Concomitant]
     Active Substance: MAGNESIUM
  8. VITAMIN B COMPLEX [Concomitant]
     Active Substance: CYANOCOBALAMIN\DEXPANTHENOL\NIACINAMIDE\PYRIDOXINE HYDROCHLORIDE\RIBOFLAVIN 5^-PHOSPHATE SODIUM\THIA
  9. PROBIOTICS NOS [Concomitant]
     Active Substance: PROBIOTICS NOS

REACTIONS (12)
  - Pruritus [None]
  - Insomnia [None]
  - Fatigue [None]
  - Tachyphrenia [None]
  - Mania [None]
  - Drug withdrawal syndrome [None]
  - Gastrointestinal disorder [None]
  - Faeces discoloured [None]
  - Abdominal distension [None]
  - Diarrhoea [None]
  - Weight decreased [None]
  - Food aversion [None]

NARRATIVE: CASE EVENT DATE: 20250317
